FAERS Safety Report 8310363-2 (Version None)
Quarter: 2012Q2

REPORT INFORMATION
  Report Type: 
  Country: None (occurrence: None)
  Receive Date: 20120425
  Receipt Date: 20120411
  Transmission Date: 20120825
  Serious: Yes (Other)
  Sender: FDA-Public Use
  Company Number: US-BAYER-2012-035160

PATIENT
  Age: 45 Year
  Sex: Female
  Weight: 77 kg

DRUGS (5)
  1. EXCEDRIN (MIGRAINE) [Concomitant]
     Indication: MIGRAINE
  2. LEVOTHYROXINE SODIUM [Concomitant]
  3. BYETTA [Concomitant]
  4. ALEVE (CAPLET) [Suspect]
     Indication: MIGRAINE
     Route: 048
  5. CRESTOR [Concomitant]

REACTIONS (1)
  - MIGRAINE [None]
